FAERS Safety Report 24124504 (Version 1)
Quarter: 2024Q3

REPORT INFORMATION
  Report Type: Spontaneous
  Country: US (occurrence: US)
  Receive Date: 20240723
  Receipt Date: 20240723
  Transmission Date: 20241016
  Serious: Yes (Death, Other)
  Sender: HELSINN HEALTHCARE
  Company Number: US-HBP-2024US030947

PATIENT
  Sex: Male

DRUGS (1)
  1. VALCHLOR [Suspect]
     Active Substance: MECHLORETHAMINE
     Indication: Cutaneous T-cell lymphoma
     Dosage: THIN FILM TO AFFECTED SKIN, QD
     Route: 061

REACTIONS (2)
  - Hepatic cirrhosis [Fatal]
  - Intentional dose omission [Unknown]
